FAERS Safety Report 4914704-5 (Version None)
Quarter: 2006Q1

REPORT INFORMATION
  Report Type: 
  Country: None (occurrence: None)
  Receive Date: 20060216
  Receipt Date: 20050506
  Transmission Date: 20060701
  Serious: Yes (Hospitalization, Disabling, Other)
  Sender: FDA-Public Use
  Company Number: US-MERCK-0505USA00907

PATIENT
  Age: 60 Year
  Sex: Female
  Weight: 90 kg

DRUGS (1)
  1. VIOXX [Suspect]
     Indication: ARTHRITIS
     Route: 048
     Dates: start: 19990101, end: 20041201

REACTIONS (4)
  - CEREBROVASCULAR ACCIDENT [None]
  - LIMB INJURY [None]
  - STAPHYLOCOCCAL INFECTION [None]
  - THROMBOSIS [None]
